FAERS Safety Report 9723242 (Version 3)
Quarter: 2014Q1

REPORT INFORMATION
  Report Type: Spontaneous
  Country: AR (occurrence: AR)
  Receive Date: 20131202
  Receipt Date: 20140310
  Transmission Date: 20141002
  Serious: Yes (Other)
  Sender: FDA-Public Use
  Company Number: AR-PFIZER INC-2013262405

PATIENT
  Age: 13 Year
  Sex: Male

DRUGS (1)
  1. GENOTROPIN [Suspect]
     Indication: GROWTH HORMONE DEFICIENCY
     Dosage: 1.2MG (MONDAY-FRIDAY), 1.4MG (SATURDAY-SUDAY), 1X/DAY
     Route: 058
     Dates: start: 20130307

REACTIONS (2)
  - Injury associated with device [Recovered/Resolved]
  - Injection site induration [Recovered/Resolved]
